FAERS Safety Report 20437718 (Version 1)
Quarter: 2022Q1

REPORT INFORMATION
  Report Type: Spontaneous
  Country: US (occurrence: US)
  Receive Date: 20220207
  Receipt Date: 20220207
  Transmission Date: 20220423
  Serious: Yes (Hospitalization, Other)
  Sender: FDA-Public Use
  Company Number: US-PFIZER INC-202200129199

PATIENT
  Age: 43 Year
  Sex: Female

DRUGS (1)
  1. METHOTREXATE SODIUM [Suspect]
     Active Substance: METHOTREXATE SODIUM
     Indication: Sarcoidosis
     Dosage: UNK

REACTIONS (8)
  - Histoplasmosis [Recovering/Resolving]
  - Histoplasmosis disseminated [Recovering/Resolving]
  - Hilar lymphadenopathy [Recovering/Resolving]
  - Hepatosplenomegaly [Recovering/Resolving]
  - Pneumonia [Recovering/Resolving]
  - Pancytopenia [Recovering/Resolving]
  - Granuloma [Recovering/Resolving]
  - Off label use [Unknown]
